FAERS Safety Report 5957851-1 (Version None)
Quarter: 2008Q4

REPORT INFORMATION
  Report Type: 
  Country: None (occurrence: None)
  Receive Date: 20081117
  Receipt Date: 20081104
  Transmission Date: 20090506
  Serious: Yes (Other)
  Sender: FDA-Public Use
  Company Number: JPI-P-005318

PATIENT
  Age: 69 Year
  Sex: Male

DRUGS (2)
  1. XYREM [Suspect]
     Indication: DRUG USE FOR UNKNOWN INDICATION
     Dosage: SEE IMAGE
     Route: 048
     Dates: start: 20080514
  2. XYREM [Suspect]
     Indication: DRUG USE FOR UNKNOWN INDICATION
     Dosage: SEE IMAGE
     Route: 048
     Dates: start: 20080707

REACTIONS (2)
  - ASTHENIA [None]
  - CARDIAC PACEMAKER INSERTION [None]
